FAERS Safety Report 9174957 (Version 1)
Quarter: 2013Q1

REPORT INFORMATION
  Report Type: Spontaneous
  Country: US (occurrence: US)
  Receive Date: 20130320
  Receipt Date: 20130320
  Transmission Date: 20140127
  Serious: Yes (Hospitalization)
  Sender: FDA-Public Use
  Company Number: US-GLAXOSMITHKLINE-A1016390A

PATIENT
  Age: 66 Year
  Sex: Male

DRUGS (1)
  1. ADVAIR [Suspect]
     Route: 055
     Dates: start: 20120424

REACTIONS (1)
  - Hospitalisation [Unknown]
